FAERS Safety Report 4847784-6 (Version None)
Quarter: 2005Q4

REPORT INFORMATION
  Report Type: 
  Country: None (occurrence: None)
  Receive Date: 20051207
  Receipt Date: 20051006
  Transmission Date: 20060501
  Serious: Yes (Hospitalization)
  Sender: FDA-Public Use
  Company Number: US-MERCK-0510USA05875

PATIENT
  Age: 61 Year
  Sex: Female
  Weight: 73 kg

DRUGS (2)
  1. VIOXX [Suspect]
     Indication: ARTHRALGIA
     Route: 048
     Dates: start: 19990101, end: 20020101
  2. TYLENOL [Concomitant]
     Route: 048

REACTIONS (5)
  - CAROTID ARTERY ATHEROMA [None]
  - DEMYELINATION [None]
  - ENCEPHALOMALACIA [None]
  - HYPERTENSION [None]
  - LACUNAR INFARCTION [None]
